FAERS Safety Report 5822589-8 (Version None)
Quarter: 2008Q3

REPORT INFORMATION
  Report Type: 
  Country: None (occurrence: None)
  Receive Date: 20080723
  Receipt Date: 20080723
  Transmission Date: 20090109
  Serious: Yes (Hospitalization)
  Sender: FDA-Public Use
  Company Number: None

PATIENT
  Age: 86 Year
  Sex: Male

DRUGS (2)
  1. WARFARIN SODIUM [Suspect]
     Indication: ATRIAL FIBRILLATION
     Dosage: 10 MG EVERY DAY PO
     Route: 048
     Dates: start: 20060118, end: 20080422
  2. ETODOLAC [Suspect]
     Indication: PAIN
     Dosage: 400 MG BID PO
     Route: 048
     Dates: start: 20060118, end: 20080422

REACTIONS (7)
  - ABDOMINAL PAIN LOWER [None]
  - ANAEMIA [None]
  - DECREASED APPETITE [None]
  - DYSPNOEA [None]
  - FAECES DISCOLOURED [None]
  - FATIGUE [None]
  - OEDEMA PERIPHERAL [None]
